FAERS Safety Report 16409828 (Version 1)
Quarter: 2019Q2

REPORT INFORMATION
  Report Type: Spontaneous
  Country: US (occurrence: US)
  Receive Date: 20190610
  Receipt Date: 20190610
  Transmission Date: 20190711
  Serious: No
  Sender: FDA-Public Use
  Company Number: US-PFIZER INC-2019246114

PATIENT
  Sex: Female

DRUGS (1)
  1. GABAPENTIN. [Suspect]
     Active Substance: GABAPENTIN
     Dosage: UNK (STARTING DOSE FOR 10 DAYS)

REACTIONS (4)
  - Vertigo [Unknown]
  - Weight increased [Unknown]
  - Muscle atrophy [Unknown]
  - Hyperhidrosis [Unknown]
